FAERS Safety Report 12221050 (Version 1)
Quarter: 2016Q1

REPORT INFORMATION
  Report Type: Spontaneous
  Country: US (occurrence: None)
  Receive Date: 20160329
  Receipt Date: 20160329
  Transmission Date: 20160526
  Serious: Yes (Other)
  Sender: FDA-Public Use
  Company Number: None

PATIENT
  Age: 46 Year
  Sex: Female
  Weight: 61.69 kg

DRUGS (2)
  1. PERCOCET [Concomitant]
     Active Substance: ACETAMINOPHEN\OXYCODONE HYDROCHLORIDE
  2. GABAPENTIN, 300MG [Suspect]
     Active Substance: GABAPENTIN
     Indication: NEURALGIA
     Route: 048

REACTIONS (1)
  - Intention tremor [None]

NARRATIVE: CASE EVENT DATE: 20150212
